FAERS Safety Report 8359427-8 (Version None)
Quarter: 2012Q2

REPORT INFORMATION
  Report Type: 
  Country: None (occurrence: None)
  Receive Date: 20120514
  Receipt Date: 20120514
  Transmission Date: 20120825
  Serious: Yes (Hospitalization)
  Sender: FDA-Public Use
  Company Number: None

PATIENT
  Sex: Female
  Weight: 87.5 kg

DRUGS (2)
  1. TAXOL [Suspect]
     Dosage: 400 MG
     Dates: end: 20120502
  2. CARBOPLATIN [Suspect]
     Dosage: 790 MG
     Dates: end: 20120502

REACTIONS (6)
  - DEHYDRATION [None]
  - DIARRHOEA [None]
  - NAUSEA [None]
  - VOMITING [None]
  - URINARY TRACT INFECTION [None]
  - DIVERTICULITIS [None]
